FAERS Safety Report 17859023 (Version 1)
Quarter: 2020Q2

REPORT INFORMATION
  Report Type: Other
  Country: GB (occurrence: GB)
  Receive Date: 20200604
  Receipt Date: 20200604
  Transmission Date: 20200714
  Serious: Yes (Other)
  Sender: FDA-Public Use
  Company Number: GB-LUPIN PHARMACEUTICALS INC.-2020-01064

PATIENT
  Sex: Female

DRUGS (1)
  1. IRBESARTAN. [Suspect]
     Active Substance: IRBESARTAN
     Indication: PRODUCT USED FOR UNKNOWN INDICATION
     Dosage: 300 MILLIGRAM, UNK
     Route: 065

REACTIONS (3)
  - Foreign body in throat [Unknown]
  - Product taste abnormal [Unknown]
  - Dysphagia [Unknown]
